FAERS Safety Report 7765177-9 (Version None)
Quarter: 2011Q3

REPORT INFORMATION
  Report Type: 
  Country: None (occurrence: None)
  Receive Date: 20110919
  Receipt Date: 20110907
  Transmission Date: 20111222
  Serious: Yes (Other)
  Sender: FDA-Public Use
  Company Number: 2010SP035719

PATIENT
  Age: 47 Year
  Sex: Female
  Weight: 112.0385 kg

DRUGS (8)
  1. SEVELAMER [Concomitant]
  2. TOPROL-XL [Concomitant]
  3. INSULIN INSULATARD NPH NORDISK [Concomitant]
  4. PROTONIX [Concomitant]
  5. CLONIDINE [Concomitant]
  6. LASIX [Concomitant]
  7. DR. SCHOLL'S FUNGAL NAIL REVITALIZER SYSTEM (NO ACTIVE INGREDIENTS) [Suspect]
     Indication: ONYCHOMYCOSIS
     Dosage: BID;TOP
     Route: 061
     Dates: start: 20100401
  8. REGULAR INSULIN [Concomitant]

REACTIONS (9)
  - HYPOAESTHESIA [None]
  - LIMB INJURY [None]
  - LOCAL SWELLING [None]
  - SKIN DISCOLOURATION [None]
  - SCAB [None]
  - PURULENT DISCHARGE [None]
  - CONDITION AGGRAVATED [None]
  - ONYCHOMYCOSIS [None]
  - NAIL BED INFECTION [None]
